FAERS Safety Report 10627916 (Version 1)
Quarter: 2014Q4

REPORT INFORMATION
  Report Type: Spontaneous
  Country: US (occurrence: US)
  Receive Date: 20141205
  Receipt Date: 20141205
  Transmission Date: 20150529
  Serious: No
  Sender: FDA-Public Use
  Company Number: US-BRISTOL-MYERS SQUIBB COMPANY-21676127

PATIENT
  Age: 82 Year
  Sex: Male
  Weight: 74.7 kg

DRUGS (1)
  1. PRAVASTATIN SODIUM. [Suspect]
     Active Substance: PRAVASTATIN SODIUM
     Dosage: LAST DOSE:14-MAR-2013; RESTARTED
     Route: 048
     Dates: start: 20110608

REACTIONS (2)
  - Myalgia [Unknown]
  - Drug ineffective [Unknown]
